FAERS Safety Report 6964895-X (Version None)
Quarter: 2010Q3

REPORT INFORMATION
  Report Type: 
  Country: None (occurrence: None)
  Receive Date: 20100903
  Receipt Date: 20100823
  Transmission Date: 20110219
  Serious: Yes (Hospitalization, Other)
  Sender: FDA-Public Use
  Company Number: GB-ELI_LILLY_AND_COMPANY-GB201008007530

PATIENT
  Age: 54 Year
  Sex: Male
  Weight: 148 kg

DRUGS (10)
  1. BYETTA [Suspect]
     Dosage: 5 UG, 2/D
     Route: 058
     Dates: start: 20090722
  2. BYETTA [Suspect]
     Dosage: 10 UG, 2/D
     Route: 058
     Dates: end: 20091111
  3. AMLODIPINE [Concomitant]
  4. ATORVASTATIN [Concomitant]
  5. CITALOPRAM HYDROBROMIDE [Concomitant]
  6. GLICLAZIDE [Concomitant]
  7. INDAPAMIDE [Concomitant]
  8. METFORMIN [Concomitant]
  9. RAMIPRIL [Concomitant]
  10. SERETIDE [Concomitant]

REACTIONS (2)
  - RENAL FAILURE ACUTE [None]
  - WEIGHT DECREASED [None]
